FAERS Safety Report 4376041-X (Version None)
Quarter: 2004Q2

REPORT INFORMATION
  Report Type: 
  Country: None (occurrence: None)
  Receive Date: 20040611
  Receipt Date: 20020516
  Transmission Date: 20050107
  Serious: Yes (Hospitalization, Other)
  Sender: FDA-Public Use
  Company Number: US-MERCK-0205USA02014

PATIENT
  Age: 77 Year
  Sex: Female
  Weight: 58 kg

DRUGS (15)
  1. ASPIRIN [Concomitant]
     Route: 065
     Dates: start: 20030101
  2. CYANOCOBALAMIN [Concomitant]
     Route: 065
  3. NEURONTIN [Concomitant]
     Indication: DIABETIC NEUROPATHY
     Route: 065
     Dates: end: 20030715
  4. GLUCOTROL [Concomitant]
     Route: 065
  5. ZESTRIL [Concomitant]
     Indication: HYPERTENSION
     Route: 065
     Dates: end: 20030625
  6. ZESTRIL [Concomitant]
     Indication: CARDIAC FAILURE CONGESTIVE
     Route: 065
     Dates: end: 20030625
  7. MOBIC [Concomitant]
     Indication: OSTEOARTHRITIS
     Route: 065
     Dates: end: 20030501
  8. NIACIN [Concomitant]
     Route: 065
  9. ACTOS [Concomitant]
     Indication: BLOOD GLUCOSE INCREASED
     Route: 065
     Dates: end: 20030201
  10. ACTOS [Concomitant]
     Indication: DIABETES MELLITUS
     Route: 065
     Dates: end: 20030201
  11. EVISTA [Concomitant]
     Indication: OSTEOPOROSIS PROPHYLAXIS
     Route: 065
  12. VIOXX [Suspect]
     Indication: ARTHRITIS
     Route: 048
     Dates: start: 20000105, end: 20010830
  13. ZOCOR [Concomitant]
     Indication: BLOOD CHOLESTEROL INCREASED
     Route: 065
  14. ZOCOR [Concomitant]
     Indication: CARDIAC DISORDER
     Route: 065
  15. ULTRAM [Concomitant]
     Route: 065

REACTIONS (15)
  - BLOOD GLUCOSE DECREASED [None]
  - CARDIAC DISORDER [None]
  - CAROTID ARTERY STENOSIS [None]
  - CEREBROVASCULAR ACCIDENT [None]
  - CHEST PAIN [None]
  - CONTUSION [None]
  - FALL [None]
  - JOINT SWELLING [None]
  - LIVER DISORDER [None]
  - LUNG NEOPLASM [None]
  - PAIN [None]
  - RENAL ARTERIOSCLEROSIS [None]
  - RENAL ATROPHY [None]
  - RENAL CYST [None]
  - RENAL FAILURE [None]
